FAERS Safety Report 10159456 (Version 1)
Quarter: 2014Q2

REPORT INFORMATION
  Report Type: Report from Study
  Country: SE (occurrence: SE)
  Receive Date: 20140508
  Receipt Date: 20140508
  Transmission Date: 20141212
  Serious: Yes (Other)
  Sender: FDA-Public Use
  Company Number: SE-MERCK-1405SWE004204

PATIENT
  Sex: 0

DRUGS (2)
  1. PEGINTERFERON ALFA-2B [Suspect]
     Indication: HEPATITIS C
     Dosage: 1.5 MICROGRAM PER KILOGRAM, QW
     Route: 058
  2. RIBAVIRIN [Suspect]
     Indication: HEPATITIS C
     Dosage: 800-1200 MG DAILY (WEIGHT BASED)
     Route: 048

REACTIONS (2)
  - Psychotic disorder [Unknown]
  - Suicidal ideation [Unknown]
